FAERS Safety Report 7132269-7 (Version None)
Quarter: 2010Q4

REPORT INFORMATION
  Report Type: 
  Country: None (occurrence: None)
  Receive Date: 20101202
  Receipt Date: 20101116
  Transmission Date: 20110411
  Serious: Yes (Hospitalization, Other)
  Sender: FDA-Public Use
  Company Number: US-AMGEN-QUU434302

PATIENT

DRUGS (30)
  1. NPLATE [Suspect]
     Indication: THROMBOCYTOPENIA
     Dosage: 360 A?G, UNK
     Route: 058
     Dates: start: 20100216, end: 20101112
  2. NPLATE [Suspect]
     Dosage: UNK
     Dates: start: 20101112
  3. MYCOPHENOLATE MOFETIL [Concomitant]
     Dosage: 1000 MG, BID
  4. TACROLIMUS [Concomitant]
     Dosage: 1 MG, QD
  5. PREDNISONE [Concomitant]
  6. URSODIOL [Concomitant]
     Dosage: 300 MG, BID
  7. LORAZEPAM [Concomitant]
     Dosage: 1 MG, PRN
  8. GLIPIZIDE [Concomitant]
     Dosage: 5 MG, QD
  9. ASCORBIC ACID [Concomitant]
     Dosage: 500 MG, QD
     Route: 048
  10. GABAPENTIN [Concomitant]
     Dosage: 300 MG, TID
  11. MULTI-VITAMINS [Concomitant]
  12. MORPHINE SULFATE [Concomitant]
     Dosage: 30 MG, BID
     Route: 048
  13. OXYCODONE HCL [Concomitant]
     Dosage: 10 MG, PRN
  14. ACICLOVIR [Concomitant]
     Dosage: 400 MG, BID
  15. POSACONAZOLE [Concomitant]
     Dosage: 200 MG, TID
  16. TRIMETHOPRIM + SULFAMETHOXAZOLE [Concomitant]
     Dosage: UNK UNK, 3 TIMES/WK
  17. TRIAMCINOLONE [Concomitant]
     Dosage: .5 %, BID
     Route: 061
  18. SIROLIMUS [Concomitant]
     Dosage: 1 MG, QD
  19. POTASSIUM CHLORIDE [Concomitant]
     Dosage: 20 MEQ, QD
  20. INSULIN [Concomitant]
     Dosage: UNK UNK, PRN
  21. AZITHROMYCIN [Concomitant]
     Dosage: 600 MG, QWK
  22. ONDANSETRON HYDROCHLORIDE [Concomitant]
     Dosage: 4 MG, PRN
  23. ACETAMINOPHEN AND OXYCODONE HCL [Concomitant]
  24. MAGNESIUM OXIDE [Concomitant]
     Dosage: 400 MG, BID
  25. DASATINIB [Concomitant]
     Dosage: 100 MG, QD
     Dates: start: 20090101
  26. BACTRIM [Concomitant]
     Dosage: 1 DF, QOD
  27. ACETAMINOPHEN [Concomitant]
  28. DIPHENHYDRAMINE [Concomitant]
  29. PERCOCET [Concomitant]
     Dosage: 1 DF, PRN
  30. VACCINES [Concomitant]

REACTIONS (20)
  - ACARODERMATITIS [None]
  - ANXIETY [None]
  - ASTHENIA [None]
  - BLOOD POTASSIUM INCREASED [None]
  - DECREASED APPETITE [None]
  - DEEP VEIN THROMBOSIS [None]
  - FATIGUE [None]
  - GRAFT VERSUS HOST DISEASE [None]
  - HEPATIC ENZYME INCREASED [None]
  - HYPOAESTHESIA [None]
  - INSOMNIA [None]
  - MUSCULAR WEAKNESS [None]
  - MYOPATHY [None]
  - NAUSEA [None]
  - OEDEMA PERIPHERAL [None]
  - PAIN [None]
  - PAIN IN EXTREMITY [None]
  - PETECHIAE [None]
  - PURPURA [None]
  - WHEEZING [None]
